FAERS Safety Report 12849521 (Version 4)
Quarter: 2016Q4

REPORT INFORMATION
  Report Type: Spontaneous
  Country: US (occurrence: US)
  Receive Date: 20161014
  Receipt Date: 20161214
  Transmission Date: 20170207
  Serious: No
  Sender: FDA-Public Use
  Company Number: US-PFIZER INC-2016479996

PATIENT
  Age: 86 Year
  Sex: Female
  Weight: 86.62 kg

DRUGS (7)
  1. LYRICA [Suspect]
     Active Substance: PREGABALIN
     Indication: PARKINSON^S DISEASE
  2. MIRAPEX [Concomitant]
     Active Substance: PRAMIPEXOLE DIHYDROCHLORIDE
     Indication: BACK DISORDER
  3. WARFARIN [Concomitant]
     Active Substance: WARFARIN
     Dosage: UNK
  4. LYRICA [Suspect]
     Active Substance: PREGABALIN
     Indication: NEURALGIA
     Dosage: 150 MG, 2X/DAY
     Route: 048
  5. LYRICA [Suspect]
     Active Substance: PREGABALIN
     Indication: TREMOR
     Dosage: 300 MG, DAILY (TWO 150 MG CAPSULES DAILY AT ONE TIME)
  6. LYRICA [Suspect]
     Active Substance: PREGABALIN
     Indication: BLOOD CALCIUM DECREASED
  7. MIRAPEX [Concomitant]
     Active Substance: PRAMIPEXOLE DIHYDROCHLORIDE
     Indication: MUSCULOSKELETAL DISORDER
     Dosage: 0.75 MG, 1X/DAY

REACTIONS (5)
  - Body height decreased [Unknown]
  - Posture abnormal [Unknown]
  - Confusional state [Unknown]
  - Drug ineffective [Unknown]
  - Dysphonia [Unknown]
